FAERS Safety Report 17535585 (Version 2)
Quarter: 2020Q2

REPORT INFORMATION
  Report Type: Report from Study
  Country: None (occurrence: US)
  Receive Date: 20200312
  Receipt Date: 20200611
  Transmission Date: 20200713
  Serious: Yes (Hospitalization, Other)
  Sender: FDA-Public Use
  Company Number: US-ABBVIE-20K-163-3306190-00

PATIENT
  Age: 69 Year
  Sex: Male

DRUGS (14)
  1. CREON [Suspect]
     Active Substance: PANCRELIPASE AMYLASE\PANCRELIPASE LIPASE\PANCRELIPASE PROTEASE
     Indication: PANCREATIC FAILURE
     Dosage: 3 CAPSULES IN EACH MEAL AND 2 CAPSULES IN EACH SNACK.?DEPENDS ON NUMBER OF MEAL AND SNACK
     Route: 048
     Dates: start: 2008, end: 2010
  2. CREON [Suspect]
     Active Substance: PANCRELIPASE AMYLASE\PANCRELIPASE LIPASE\PANCRELIPASE PROTEASE
     Dosage: 3 CAPSULES IN EACH MEAL AND 2 CAPSULES IN EACH SNACK.?DEPENDS ON NUMBER OF MEAL AND SNACK
     Route: 048
     Dates: start: 2010, end: 2013
  3. NITROGLYCERIN. [Concomitant]
     Active Substance: NITROGLYCERIN
     Indication: PRODUCT USED FOR UNKNOWN INDICATION
  4. METOPROLOL. [Concomitant]
     Active Substance: METOPROLOL
     Indication: PRODUCT USED FOR UNKNOWN INDICATION
  5. VITAMIN B12 [Concomitant]
     Active Substance: CYANOCOBALAMIN
     Indication: PRODUCT USED FOR UNKNOWN INDICATION
  6. TAMSULOSIN [Concomitant]
     Active Substance: TAMSULOSIN
     Indication: PRODUCT USED FOR UNKNOWN INDICATION
  7. METFORMIN [Concomitant]
     Active Substance: METFORMIN HYDROCHLORIDE
     Indication: PRODUCT USED FOR UNKNOWN INDICATION
  8. CREON [Suspect]
     Active Substance: PANCRELIPASE AMYLASE\PANCRELIPASE LIPASE\PANCRELIPASE PROTEASE
     Dosage: 3 CAPSULES IN EACH MEAL AND 2 CAPSULES IN EACH SNACK.?DEPENDS ON NUMBER OF MEAL AND SNACK
     Route: 048
     Dates: start: 2017
  9. LASIX [Concomitant]
     Active Substance: FUROSEMIDE
     Indication: PRODUCT USED FOR UNKNOWN INDICATION
  10. ASPIRIN. [Concomitant]
     Active Substance: ASPIRIN
     Indication: PRODUCT USED FOR UNKNOWN INDICATION
  11. POTASSIUM CHLORIDE. [Concomitant]
     Active Substance: POTASSIUM CHLORIDE
     Indication: PRODUCT USED FOR UNKNOWN INDICATION
  12. CREON [Suspect]
     Active Substance: PANCRELIPASE AMYLASE\PANCRELIPASE LIPASE\PANCRELIPASE PROTEASE
     Dosage: 3 CAPSULES IN EACH MEAL AND 2 CAPSULES IN EACH SNACK.?DEPENDS ON NUMBER OF MEAL AND SNACK
     Route: 048
     Dates: start: 2013, end: 2017
  13. ELIQUIS [Concomitant]
     Active Substance: APIXABAN
     Indication: PRODUCT USED FOR UNKNOWN INDICATION
  14. AMIODARONE [Concomitant]
     Active Substance: AMIODARONE
     Indication: PRODUCT USED FOR UNKNOWN INDICATION

REACTIONS (10)
  - Asthenia [Unknown]
  - Cardiac pacemaker insertion [Unknown]
  - Hospitalisation [Unknown]
  - Retinal disorder [Unknown]
  - Intestinal obstruction [Unknown]
  - Abdominal pain [Unknown]
  - Pyrexia [Unknown]
  - Implantable defibrillator insertion [Unknown]
  - Cardiac failure congestive [Unknown]
  - Hospitalisation [Unknown]

NARRATIVE: CASE EVENT DATE: 20080502
